FAERS Safety Report 11068085 (Version 1)
Quarter: 2015Q2

REPORT INFORMATION
  Report Type: Spontaneous
  Country: US (occurrence: None)
  Receive Date: 20150424
  Receipt Date: 20150424
  Transmission Date: 20150821
  Serious: Yes (Other)
  Sender: FDA-Public Use
  Company Number: None

PATIENT
  Age: 74 Year
  Sex: Female
  Weight: 62.14 kg

DRUGS (10)
  1. WARFARIN [Concomitant]
     Active Substance: WARFARIN
  2. SPIRONOLACTONE. [Concomitant]
     Active Substance: SPIRONOLACTONE
  3. VITAMIN D [Concomitant]
     Active Substance: CHOLECALCIFEROL
  4. MEDTRONIC PACEMAKER/DEFRIBRILLATOR [Concomitant]
  5. CENTRUM SILVER VITAMIN [Concomitant]
  6. VALSARTAN. [Suspect]
     Active Substance: VALSARTAN
     Indication: HYPERTENSION
     Dosage: 90 PILLS ONCE DAILY TAKEN BY MOUTH
     Route: 048
     Dates: start: 20150320, end: 20150411
  7. TUMS [Concomitant]
     Active Substance: CALCIUM CARBONATE
  8. AMIODORONE [Concomitant]
     Active Substance: AMIODARONE
  9. FISH OIL [Concomitant]
     Active Substance: FISH OIL
  10. PRESERVISION EYE VITIAMIN [Concomitant]

REACTIONS (4)
  - Dizziness [None]
  - Nausea [None]
  - Muscular weakness [None]
  - Injury [None]
